FAERS Safety Report 4502686-X (Version None)
Quarter: 2004Q4

REPORT INFORMATION
  Report Type: 
  Country: None (occurrence: None)
  Receive Date: 20041109
  Receipt Date: 20041027
  Transmission Date: 20050328
  Serious: Yes (Other)
  Sender: FDA-Public Use
  Company Number: HQWYE145427OCT04

PATIENT
  Age: 57 Year
  Sex: Male

DRUGS (3)
  1. RIFUN (PANTOPRAZOLE, TABLET, DELAYED RELEASE) [Suspect]
     Indication: GASTRITIS EROSIVE
     Dosage: TOOK 5 X 40 MG IN 16 HR (OVERDOSE AMOUNT) ORAL
     Route: 048
     Dates: start: 20040831, end: 20040901
  2. RIFUN (PANTOPRAZOLE, TABLET, DELAYED RELEASE) [Suspect]
     Indication: PAIN
     Dosage: TOOK 5 X 40 MG IN 16 HR (OVERDOSE AMOUNT) ORAL
     Route: 048
     Dates: start: 20040831, end: 20040901
  3. RIFUN (PANTOPRAZOLE, TABLET, DELAYED RELEASE) [Suspect]
     Indication: REFLUX OESOPHAGITIS
     Dosage: TOOK 5 X 40 MG IN 16 HR (OVERDOSE AMOUNT) ORAL
     Route: 048
     Dates: start: 20040831, end: 20040901

REACTIONS (2)
  - OVERDOSE [None]
  - VISUAL ACUITY REDUCED [None]
